APPROVED DRUG PRODUCT: CLOFIBRATE
Active Ingredient: CLOFIBRATE
Strength: 500MG
Dosage Form/Route: CAPSULE;ORAL
Application: A073396 | Product #001
Applicant: BANNER PHARMACAPS INC
Approved: Mar 20, 1992 | RLD: No | RS: No | Type: DISCN